FAERS Safety Report 5790154-7 (Version None)
Quarter: 2008Q2

REPORT INFORMATION
  Report Type: 
  Country: None (occurrence: None)
  Receive Date: 20080626
  Receipt Date: 20080402
  Transmission Date: 20081010
  Serious: No
  Sender: FDA-Public Use
  Company Number: A0701103A

PATIENT
  Age: 20 Year
  Sex: Female

DRUGS (1)
  1. ALLI [Suspect]
     Indication: DRUG USE FOR UNKNOWN INDICATION
     Route: 048
     Dates: end: 20080401

REACTIONS (4)
  - CHROMATURIA [None]
  - DRUG EXPOSURE DURING PREGNANCY [None]
  - FLATULENCE [None]
  - RECTAL DISCHARGE [None]
